FAERS Safety Report 4977056-0 (Version None)
Quarter: 2006Q2

REPORT INFORMATION
  Report Type: 
  Country: None (occurrence: None)
  Receive Date: 20060419
  Receipt Date: 20060407
  Transmission Date: 20061013
  Serious: Yes (Hospitalization)
  Sender: FDA-Public Use
  Company Number: NL-NOVOPROD-252403

PATIENT
  Age: 60 Year
  Sex: Female

DRUGS (3)
  1. ACTIVELLE [Suspect]
     Indication: HORMONE REPLACEMENT THERAPY
     Dosage: UNK, QD
     Route: 048
     Dates: start: 20030324, end: 20040303
  2. RANITIDINE HYDROCHLORIDE [Concomitant]
     Indication: GASTRITIS
     Dosage: 150 MG, UNK
     Route: 048
     Dates: start: 20031205, end: 20031215
  3. HYOSCINE HBR HYT [Concomitant]
     Dosage: 200 MG, UNK
     Route: 048
     Dates: start: 20031001

REACTIONS (1)
  - CHOLELITHIASIS [None]
